FAERS Safety Report 17912467 (Version 1)
Quarter: 2020Q2

REPORT INFORMATION
  Report Type: Report from Study
  Country: PH (occurrence: PH)
  Receive Date: 20200618
  Receipt Date: 20200618
  Transmission Date: 20200714
  Serious: Yes (Hospitalization)
  Sender: FDA-Public Use
  Company Number: PH-ACTELION-A-CH2020-206090

PATIENT
  Age: 14 Year
  Sex: Male

DRUGS (2)
  1. TRACLEER [Suspect]
     Active Substance: BOSENTAN
     Indication: PRODUCT USED FOR UNKNOWN INDICATION
     Dosage: 125 MG, BID
     Route: 048
  2. VIAGRA [SILDENAFIL] [Concomitant]

REACTIONS (3)
  - Asthenia [Unknown]
  - Product dose omission [Unknown]
  - Haematemesis [Unknown]
